FAERS Safety Report 10595072 (Version 2)
Quarter: 2014Q4

REPORT INFORMATION
  Report Type: Spontaneous
  Country: CH (occurrence: CH)
  Receive Date: 20141120
  Receipt Date: 20141120
  Transmission Date: 20150529
  Serious: Yes (Life-Threatening, Other)
  Sender: FDA-Public Use
  Company Number: CH-ROCHE-1484156

PATIENT
  Age: 59 Year
  Sex: Male
  Weight: 88 kg

DRUGS (2)
  1. METHOTREXATE [Suspect]
     Active Substance: METHOTREXATE
     Indication: RHEUMATOID ARTHRITIS
     Route: 065
     Dates: start: 20100311, end: 20141020
  2. MABTHERA [Suspect]
     Active Substance: RITUXIMAB
     Indication: RHEUMATOID ARTHRITIS
     Route: 042
     Dates: start: 20060501, end: 20140602

REACTIONS (3)
  - Conus medullaris syndrome [Not Recovered/Not Resolved]
  - Herpes zoster meningoencephalitis [Not Recovered/Not Resolved]
  - Herpes zoster meningomyelitis [Not Recovered/Not Resolved]

NARRATIVE: CASE EVENT DATE: 20141020
